FAERS Safety Report 8623542-1 (Version None)
Quarter: 2012Q3

REPORT INFORMATION
  Report Type: 
  Country: None (occurrence: None)
  Receive Date: 20120824
  Receipt Date: 20120824
  Transmission Date: 20120928
  Serious: Yes (Hospitalization)
  Sender: FDA-Public Use
  Company Number: None

PATIENT
  Sex: Male
  Weight: 26.9 kg

DRUGS (5)
  1. ISOTRETINOIN [Suspect]
     Dosage: 80 MG
  2. C-CSF (FILGRASTIM, AMGEN) [Suspect]
     Dosage: 135 MG
  3. VINCRISTINE SULFATE [Suspect]
     Dosage: 2.8 MG
  4. CISPLATIN [Suspect]
     Dosage: 74 MG
  5. CYCLOPHOSPHAMIDE [Suspect]
     Dosage: 1960 MG

REACTIONS (10)
  - NEUTROPENIA [None]
  - ACUTE RESPIRATORY DISTRESS SYNDROME [None]
  - BRADYCARDIA [None]
  - STATUS EPILEPTICUS [None]
  - ORAL CANDIDIASIS [None]
  - TACHYCARDIA [None]
  - HYPOMAGNESAEMIA [None]
  - SHOCK [None]
  - BLOOD PRESSURE DECREASED [None]
  - FUNGAL SEPSIS [None]
